FAERS Safety Report 17427758 (Version 1)
Quarter: 2020Q1

REPORT INFORMATION
  Report Type: Spontaneous
  Country: FR (occurrence: FR)
  Receive Date: 20200218
  Receipt Date: 20200218
  Transmission Date: 20200409
  Serious: Yes (Life-Threatening, Other)
  Sender: FDA-Public Use
  Company Number: FR-ACCORD-172920

PATIENT
  Age: 66 Year
  Sex: Female

DRUGS (2)
  1. TEMOZOLOMIDE. [Suspect]
     Active Substance: TEMOZOLOMIDE
     Indication: MALIGNANT HISTIOCYTOSIS
     Dosage: D1-D5, SIC
  2. TOPOTECAN [Suspect]
     Active Substance: TOPOTECAN HYDROCHLORIDE
     Indication: MALIGNANT HISTIOCYTOSIS
     Dosage: J1-J5, SIC

REACTIONS (3)
  - Off label use [Unknown]
  - Haematotoxicity [Unknown]
  - Toxicity to various agents [Unknown]
